FAERS Safety Report 4786646-X (Version None)
Quarter: 2005Q3

REPORT INFORMATION
  Report Type: 
  Country: None (occurrence: None)
  Receive Date: 20050930
  Receipt Date: 20050912
  Transmission Date: 20060218
  Serious: Yes (Death, Other)
  Sender: FDA-Public Use
  Company Number: 200512033BWH

PATIENT
  Sex: Male

DRUGS (5)
  1. CIPRO XR [Suspect]
  2. ALLOPURINOL [Suspect]
  3. LEVAQUIN [Suspect]
  4. CEPHALEXIN [Suspect]
  5. ZOSYN [Concomitant]

REACTIONS (2)
  - STEVENS-JOHNSON SYNDROME [None]
  - TOXIC EPIDERMAL NECROLYSIS [None]
